FAERS Safety Report 25191511 (Version 1)
Quarter: 2025Q2

REPORT INFORMATION
  Report Type: Spontaneous
  Country: IT (occurrence: IT)
  Receive Date: 20250414
  Receipt Date: 20250414
  Transmission Date: 20250716
  Serious: Yes (Death, Other)
  Sender: SANDOZ
  Company Number: IT-CHEPLA-2025004037

PATIENT
  Age: 64 Year
  Sex: Male

DRUGS (6)
  1. ALLOPURINOL [Suspect]
     Active Substance: ALLOPURINOL
     Indication: Prophylaxis
     Route: 065
  2. HYDROXYUREA [Suspect]
     Active Substance: HYDROXYUREA
     Dosage: DAILY DOSE OF HYDROXYUREA WAS INCREASED TO 115 MG/KG/DAY
     Route: 065
  3. HYDROXYUREA [Suspect]
     Active Substance: HYDROXYUREA
     Indication: Acute promyelocytic leukaemia
     Dosage: HIGH-DOSE HYDROXYUREA (HU, 60 MG/KG /DAY)
     Route: 065
  4. METHYLPREDNISOLONE [Suspect]
     Active Substance: METHYLPREDNISOLONE
     Indication: Prophylaxis
     Dosage: METHYLPREDNISOLONE AT 0.5 MG/KG/DAY
     Route: 065
  5. SODIUM CARBONATE [Suspect]
     Active Substance: SODIUM CARBONATE
     Indication: Prophylaxis
     Route: 042
  6. TRETINOIN [Suspect]
     Active Substance: TRETINOIN
     Indication: Acute promyelocytic leukaemia
     Dosage: 45 MG/M?/DAY
     Route: 065

REACTIONS (5)
  - Cerebral haemorrhage [Fatal]
  - Cardiac arrest [Fatal]
  - Acute coronary syndrome [Unknown]
  - Respiratory distress [Unknown]
  - Differentiation syndrome [Unknown]
